FAERS Safety Report 8905800 (Version 1)
Quarter: 2012Q4

REPORT INFORMATION
  Report Type: 
  Country: FR (occurrence: FR)
  Receive Date: 20121113
  Receipt Date: 20121113
  Transmission Date: 20130627
  Serious: Yes (Hospitalization)
  Sender: FDA-Public Use
  Company Number: FR-GLAXOSMITHKLINE-B0841959A

PATIENT
  Age: 83 Year
  Sex: Male

DRUGS (4)
  1. ZOPHREN [Suspect]
     Indication: PREMEDICATION
     Dosage: 8MG per day
     Route: 042
     Dates: start: 20120606, end: 20120606
  2. OXALIPLATINE [Suspect]
     Indication: COLON CANCER
     Dosage: 460MG per day
     Route: 042
     Dates: start: 20120606, end: 20120606
  3. CALCIUM LEVOFOLINATE [Suspect]
     Indication: COLON CANCER
     Dosage: 320MG per day
     Route: 042
     Dates: start: 20120606, end: 20120606
  4. METHYLPREDNISOLONE [Suspect]
     Indication: COLON CANCER
     Dosage: 60MG per day
     Route: 042
     Dates: start: 20120606, end: 20120606

REACTIONS (3)
  - Paraesthesia [Recovered/Resolved]
  - Hypotension [Recovered/Resolved]
  - Hypothermia [Recovered/Resolved]
